FAERS Safety Report 18159989 (Version 1)
Quarter: 2020Q3

REPORT INFORMATION
  Report Type: Other
  Country: GE (occurrence: GE)
  Receive Date: 20200818
  Receipt Date: 20200818
  Transmission Date: 20201103
  Serious: Yes (Other)
  Sender: FDA-Public Use
  Company Number: GE-DEXPHARM-20200740

PATIENT
  Age: 3 Month
  Sex: Male

DRUGS (6)
  1. PHENOBARBITAL. [Concomitant]
     Active Substance: PHENOBARBITAL
  2. LEVETIRACETAM. [Suspect]
     Active Substance: LEVETIRACETAM
     Indication: GENERALISED TONIC-CLONIC SEIZURE
  3. TOPIRAMATE. [Concomitant]
     Active Substance: TOPIRAMATE
  4. PYRIDOXINE [Concomitant]
     Active Substance: PYRIDOXINE
  5. HYDROCORTISONE. [Concomitant]
     Active Substance: HYDROCORTISONE
  6. SYNACTHEN [Concomitant]

REACTIONS (1)
  - Condition aggravated [Recovered/Resolved]
